FAERS Safety Report 5868139-1 (Version None)
Quarter: 2008Q3

REPORT INFORMATION
  Report Type: 
  Country: None (occurrence: None)
  Receive Date: 20080902
  Receipt Date: 20080704
  Transmission Date: 20090109
  Serious: Yes (Other)
  Sender: FDA-Public Use
  Company Number: US-ABBOTT-08P-163-0453471-00

PATIENT
  Sex: Female

DRUGS (5)
  1. DEPAKOTE ER [Suspect]
     Indication: DRUG USE FOR UNKNOWN INDICATION
     Dates: end: 20080520
  2. DEPAKOTE ER [Suspect]
     Dates: start: 20080525, end: 20080526
  3. DEPAKOTE ER [Suspect]
     Dates: start: 20080526
  4. CLONAZEPAM [Concomitant]
     Indication: DRUG USE FOR UNKNOWN INDICATION
     Dates: end: 20080520
  5. OTHER PSYCH MEDS [Concomitant]
     Indication: DRUG USE FOR UNKNOWN INDICATION
     Dates: end: 20080520

REACTIONS (3)
  - BLOOD DISORDER [None]
  - CONVULSION [None]
  - FACE INJURY [None]
